FAERS Safety Report 4708354-3 (Version None)
Quarter: 2005Q3

REPORT INFORMATION
  Report Type: 
  Country: None (occurrence: None)
  Receive Date: 20050707
  Receipt Date: 20050625
  Transmission Date: 20060218
  Serious: Yes (Other)
  Sender: FDA-Public Use
  Company Number: 2005UW09655

PATIENT
  Age: 54 Year
  Sex: Female
  Weight: 56.7 kg

DRUGS (4)
  1. ARIMIDEX [Suspect]
     Indication: BREAST CANCER FEMALE
     Route: 048
     Dates: start: 20050101
  2. GLUCOSE [Concomitant]
  3. CALCIUM WITH VITAMIN D [Concomitant]
  4. MULTI-VITAMIN [Concomitant]

REACTIONS (3)
  - ARTHROPATHY [None]
  - ASTHENIA [None]
  - CARPAL TUNNEL SYNDROME [None]
